FAERS Safety Report 9279167 (Version 2)
Quarter: 2013Q3

REPORT INFORMATION
  Report Type: Spontaneous
  Country: MU (occurrence: MU)
  Receive Date: 20130508
  Receipt Date: 20130909
  Transmission Date: 20140515
  Serious: Yes (Hospitalization, Other)
  Sender: FDA-Public Use
  Company Number: MU-NOVOPROD-376626

PATIENT
  Sex: Female

DRUGS (2)
  1. NOVOSEVEN [Suspect]
     Indication: FACTOR VII DEFICIENCY
     Dosage: 500 MG, BIW
  2. NOVOSEVEN [Suspect]
     Indication: PROPHYLAXIS

REACTIONS (1)
  - Intracranial haematoma [Recovered/Resolved]
